FAERS Safety Report 21766690 (Version 8)
Quarter: 2023Q4

REPORT INFORMATION
  Report Type: Spontaneous
  Country: US (occurrence: US)
  Receive Date: 20221222
  Receipt Date: 20231117
  Transmission Date: 20240110
  Serious: Yes (Death, Hospitalization, Other)
  Sender: FDA-Public Use
  Company Number: US-PFIZER INC-202201384613

PATIENT
  Age: 76 Year
  Sex: Male
  Weight: 86.18 kg

DRUGS (3)
  1. INLYTA [Suspect]
     Active Substance: AXITINIB
     Indication: Renal cancer metastatic
     Dosage: 5 MG, 2X/DAY
     Route: 048
  2. INLYTA [Suspect]
     Active Substance: AXITINIB
     Dosage: 3 MG, 2X/DAY (THREE 1 MG IN MORNING, THEN IN EVENING 12 HOURS, WITH OR WITHOUT FOOD)
     Route: 048
  3. KEYTRUDA [Concomitant]
     Active Substance: PEMBROLIZUMAB
     Indication: Renal cancer metastatic
     Dosage: UNK, CYCLIC, EVERY 6 WEEKS

REACTIONS (6)
  - Death [Fatal]
  - Feeding disorder [Unknown]
  - Infection [Unknown]
  - Lower limb fracture [Unknown]
  - Decreased appetite [Unknown]
  - Coronavirus infection [Unknown]

NARRATIVE: CASE EVENT DATE: 20230905
